FAERS Safety Report 12880430 (Version 1)
Quarter: 2016Q4

REPORT INFORMATION
  Report Type: Spontaneous
  Country: US (occurrence: US)
  Receive Date: 20161025
  Receipt Date: 20161025
  Transmission Date: 20170207
  Serious: No
  Sender: FDA-Public Use
  Company Number: US-MYLANLABS-2015M1045911

PATIENT
  Sex: Female
  Weight: 58.96 kg

DRUGS (3)
  1. ARMOUR THYROID [Concomitant]
     Active Substance: THYROID, PORCINE
     Dosage: 30 MG, QD
  2. DIAZEPAM. [Suspect]
     Active Substance: DIAZEPAM
     Indication: OFF LABEL USE
  3. DIAZEPAM. [Suspect]
     Active Substance: DIAZEPAM
     Indication: TEMPOROMANDIBULAR JOINT SYNDROME
     Dosage: 10 MG, QD
     Route: 048
     Dates: start: 2014, end: 2014

REACTIONS (1)
  - Drug ineffective for unapproved indication [Recovered/Resolved]

NARRATIVE: CASE EVENT DATE: 2014
